FAERS Safety Report 14418973 (Version 1)
Quarter: 2018Q1

REPORT INFORMATION
  Report Type: Report from Study
  Country: None (occurrence: GB)
  Receive Date: 20180122
  Receipt Date: 20180122
  Transmission Date: 20180509
  Serious: Yes (Other)
  Sender: FDA-Public Use
  Company Number: GB-ABBVIE-18P-167-2226777-00

PATIENT
  Sex: Female
  Weight: 2.87 kg

DRUGS (3)
  1. OMBITASVIR/PARITAPREVIR/RITONAVIR [Suspect]
     Active Substance: OMBITASVIR\PARITAPREVIR\RITONAVIR
     Indication: EXPOSURE VIA BODY FLUID
     Route: 050
  2. DASABUVIR [Suspect]
     Active Substance: DASABUVIR
     Indication: EXPOSURE VIA BODY FLUID
     Route: 050
  3. RIBAVIRIN. [Suspect]
     Active Substance: RIBAVIRIN
     Indication: EXPOSURE VIA BODY FLUID
     Route: 050

REACTIONS (4)
  - Paternal drugs affecting foetus [Unknown]
  - Congenital syphilis [Unknown]
  - Premature baby [Unknown]
  - Foetal exposure during pregnancy [Unknown]
